FAERS Safety Report 6623145-4 (Version None)
Quarter: 2010Q1

REPORT INFORMATION
  Report Type: 
  Country: None (occurrence: None)
  Receive Date: 20100310
  Receipt Date: 20091216
  Transmission Date: 20100710
  Serious: No
  Sender: FDA-Public Use
  Company Number: US-BIOGENIDEC-2009BI041067

PATIENT
  Age: 36 Year
  Sex: Female

DRUGS (4)
  1. AVONEX [Suspect]
     Indication: MULTIPLE SCLEROSIS
     Route: 030
     Dates: start: 20011101, end: 20030901
  2. AVONEX [Suspect]
     Route: 030
     Dates: start: 20030901, end: 20090213
  3. AVONEX [Suspect]
     Route: 030
     Dates: start: 20090612
  4. NOVOLOG THROUGH AN INSULIN PUMP [Concomitant]
     Indication: TYPE 1 DIABETES MELLITUS
     Route: 058

REACTIONS (3)
  - DYSPNOEA [None]
  - HEPATIC ENZYME INCREASED [None]
  - SENSORY DISTURBANCE [None]
